FAERS Safety Report 7434358-6 (Version None)
Quarter: 2011Q2

REPORT INFORMATION
  Report Type: 
  Country: None (occurrence: None)
  Receive Date: 20110425
  Receipt Date: 20110419
  Transmission Date: 20111010
  Serious: No
  Sender: FDA-Public Use
  Company Number: US-B.I. PHARMACEUTICALS,INC./RIDGEFIELD-2011-BP-11218BP

PATIENT
  Sex: Female

DRUGS (6)
  1. PACERONE [Concomitant]
     Indication: ATRIAL FIBRILLATION
     Dosage: 200 MG
  2. BENAZEP HCTZ [Concomitant]
     Indication: HYPERTENSION
  3. METOPROLOL [Concomitant]
     Indication: HYPERTENSION
     Dosage: 200 MG
  4. PRANDIA [Concomitant]
     Indication: TYPE 2 DIABETES MELLITUS
     Dosage: 3 MG
  5. PRADAXA [Suspect]
     Indication: ATRIAL FIBRILLATION
     Dosage: 300 MG
     Route: 048
     Dates: start: 20110408, end: 20110410
  6. SIMVASTATIN [Concomitant]
     Indication: BLOOD CHOLESTEROL INCREASED
     Dosage: 20 MG

REACTIONS (3)
  - CHEST DISCOMFORT [None]
  - DIZZINESS [None]
  - CHEST PAIN [None]
